FAERS Safety Report 11213997 (Version 1)
Quarter: 2015Q2

REPORT INFORMATION
  Report Type: Spontaneous
  Country: HK (occurrence: HK)
  Receive Date: 20150623
  Receipt Date: 20150623
  Transmission Date: 20150821
  Serious: Yes (Other)
  Sender: FDA-Public Use
  Company Number: HK-GLAXOSMITHKLINE-HK2015GSK074325

PATIENT
  Age: 44 Year
  Sex: Male

DRUGS (5)
  1. AVAMYS [Concomitant]
     Active Substance: FLUTICASONE FUROATE
     Indication: RHINITIS ALLERGIC
     Dosage: 27.5 MG, UNK
     Dates: start: 201310
  2. VOLTAREN [Concomitant]
     Active Substance: DICLOFENAC SODIUM
     Indication: MYALGIA
     Dosage: 100 MG, PRN
     Route: 048
     Dates: start: 201310
  3. SINGULAIR [Concomitant]
     Active Substance: MONTELUKAST SODIUM
     Dosage: UNK
     Dates: start: 20150514
  4. TIOTROPIUM [Concomitant]
     Active Substance: TIOTROPIUM
     Dosage: UNK
     Dates: start: 20150514
  5. RELVAR ELLIPTA [Suspect]
     Active Substance: FLUTICASONE FUROATE\VILANTEROL TRIFENATATE
     Indication: ASTHMA
     Dosage: UNK
     Route: 055
     Dates: start: 20150205

REACTIONS (2)
  - Asthma [Recovering/Resolving]
  - Drug ineffective [Unknown]

NARRATIVE: CASE EVENT DATE: 201503
